FAERS Safety Report 24796768 (Version 1)
Quarter: 2025Q1

REPORT INFORMATION
  Report Type: Report from Study
  Country: IT (occurrence: IT)
  Receive Date: 20250101
  Receipt Date: 20250101
  Transmission Date: 20250408
  Serious: Yes (Other)
  Sender: TEVA
  Company Number: None

PATIENT
  Age: 47 Year
  Sex: Female
  Weight: 80 kg

DRUGS (2)
  1. EPIRUBICIN [Suspect]
     Active Substance: EPIRUBICIN
     Indication: Breast cancer
     Dosage: 1ST CYCLE EPIRUBICIN 170 MG IV + CYCLOPHOSPHAMIDE 1150 MG IV; 2ND CYCLE EPIRUBICIN 140 MG IV + CY...
     Route: 042
     Dates: start: 20240319, end: 202405
  2. CYCLOPHOSPHAMIDE [Suspect]
     Active Substance: CYCLOPHOSPHAMIDE
     Indication: Breast cancer
     Dosage: 1ST CYCLE EPIRUBICIN 170 MG IV + CYCLOPHOSPHAMIDE 1150 MG IV; 2ND CYCLE EPIRUBICIN 140 MG IV + CY...
     Route: 042
     Dates: start: 20240319, end: 202405

REACTIONS (3)
  - Neutropenia [Recovered/Resolved]
  - Nausea [Recovered/Resolved]
  - Cancer fatigue [Recovering/Resolving]

NARRATIVE: CASE EVENT DATE: 20240320
